FAERS Safety Report 6119716-4 (Version None)
Quarter: 2009Q1

REPORT INFORMATION
  Report Type: 
  Country: None (occurrence: None)
  Receive Date: 20090316
  Receipt Date: 20090307
  Transmission Date: 20090719
  Serious: Yes (Hospitalization)
  Sender: FDA-Public Use
  Company Number: US-BRISTOL-MYERS SQUIBB COMPANY-14536668

PATIENT
  Age: 77 Year
  Sex: Female
  Weight: 76 kg

DRUGS (1)
  1. IXABEPILONE [Suspect]
     Indication: ENDOMETRIAL CANCER
     Dosage: INITIAL DOSE 04OCT07;CYCLE=21DAYS;40MG/M2 OVER 3 HRS ON DAY 1
     Route: 042
     Dates: start: 20071004, end: 20071004

REACTIONS (9)
  - ANAEMIA [None]
  - EPISTAXIS [None]
  - HYPERTENSION [None]
  - LOWER GASTROINTESTINAL HAEMORRHAGE [None]
  - NEUTROPENIA [None]
  - SEPSIS [None]
  - SMALL INTESTINAL OBSTRUCTION [None]
  - UPPER GASTROINTESTINAL HAEMORRHAGE [None]
  - VOMITING [None]
